FAERS Safety Report 7917513-8 (Version None)
Quarter: 2011Q4

REPORT INFORMATION
  Report Type: 
  Country: None (occurrence: None)
  Receive Date: 20111114
  Receipt Date: 20111104
  Transmission Date: 20120403
  Serious: Yes (Other)
  Sender: FDA-Public Use
  Company Number: 2011SP043945

PATIENT
  Age: 53 Year
  Sex: Female
  Weight: 57 kg

DRUGS (3)
  1. LEVOTHYROXINE SODIUM [Concomitant]
  2. MIRTAZAPINE [Suspect]
     Indication: DEPRESSION
     Dosage: 15 MG; BID; PO
     Route: 048
     Dates: start: 20110601, end: 20110915
  3. LEXOMIL [Concomitant]

REACTIONS (1)
  - ALOPECIA [None]
